FAERS Safety Report 6975127-0 (Version None)
Quarter: 2010Q3

REPORT INFORMATION
  Report Type: 
  Country: None (occurrence: None)
  Receive Date: 20100910
  Receipt Date: 20090204
  Transmission Date: 20110219
  Serious: No
  Sender: FDA-Public Use
  Company Number: US-WYE-H08110109

PATIENT
  Sex: Female
  Weight: 71.28 kg

DRUGS (4)
  1. PRISTIQ [Suspect]
     Indication: BACK PAIN
     Dosage: 50 MG EVERY 1 TOT
     Route: 048
     Dates: start: 20090101, end: 20090101
  2. VITAMINS [Concomitant]
  3. SKELAXIN [Concomitant]
  4. LYRICA [Concomitant]

REACTIONS (1)
  - INSOMNIA [None]
